FAERS Safety Report 9303851 (Version 4)
Quarter: 2015Q4

REPORT INFORMATION
  Report Type: Spontaneous
  Country: US (occurrence: US)
  Receive Date: 20130522
  Receipt Date: 20151223
  Transmission Date: 20160305
  Serious: Yes (Other)
  Sender: FDA-Public Use
  Company Number: US-BAYER-2013-063305

PATIENT
  Age: 27 Year
  Sex: Female

DRUGS (5)
  1. MICROGYNON [Concomitant]
     Active Substance: ETHINYL ESTRADIOL\LEVONORGESTREL ACETATE
     Dosage: 100 MCG/20
     Dates: start: 20110502
  2. MICROGYNON [Concomitant]
     Active Substance: ETHINYL ESTRADIOL\LEVONORGESTREL ACETATE
     Dosage: UNK
     Dates: start: 20100825
  3. YASMIN [Suspect]
     Active Substance: DROSPIRENONE\ETHINYL ESTRADIOL
     Dosage: UNK
     Dates: start: 20100202
  4. YASMIN [Suspect]
     Active Substance: DROSPIRENONE\ETHINYL ESTRADIOL
     Dosage: UNK
     Dates: start: 20101211
  5. YASMIN [Suspect]
     Active Substance: DROSPIRENONE\ETHINYL ESTRADIOL
     Dosage: UNK
     Dates: start: 20110517

REACTIONS (6)
  - Retinal artery thrombosis [None]
  - Injury [None]
  - Retinal vein occlusion [None]
  - Embolism arterial [None]
  - Emotional distress [None]
  - Pain [None]

NARRATIVE: CASE EVENT DATE: 201106
